FAERS Safety Report 5540819-7 (Version None)
Quarter: 2007Q4

REPORT INFORMATION
  Report Type: 
  Country: None (occurrence: None)
  Receive Date: 20071129
  Receipt Date: 20070727
  Transmission Date: 20080405
  Serious: Yes (Other)
  Sender: FDA-Public Use
  Company Number: USA040772249

PATIENT
  Age: 41 Year
  Sex: Male
  Weight: 94.1 kg

DRUGS (1)
  1. ZYPREXA [Suspect]
     Indication: ABNORMAL BEHAVIOUR
     Dosage: 15 MG, DAILY (1/D),

REACTIONS (4)
  - DEPRESSION [None]
  - HYPOTONIA [None]
  - NERVE INJURY [None]
  - WEIGHT INCREASED [None]
